FAERS Safety Report 5889166-4 (Version None)
Quarter: 2008Q3

REPORT INFORMATION
  Report Type: 
  Country: None (occurrence: None)
  Receive Date: 20080919
  Receipt Date: 20080910
  Transmission Date: 20090109
  Serious: Yes (Hospitalization)
  Sender: FDA-Public Use
  Company Number: US-JNJFOC-20080903117

PATIENT
  Sex: Female
  Weight: 92.08 kg

DRUGS (4)
  1. DURAGESIC-100 [Suspect]
     Indication: DRUG USE FOR UNKNOWN INDICATION
     Route: 062
  2. METHOTREXATE [Concomitant]
     Indication: RHEUMATOID ARTHRITIS
     Route: 048
  3. PREDNISONE [Concomitant]
     Indication: RHEUMATOID ARTHRITIS
     Route: 048
  4. ENBREL [Concomitant]
     Indication: RHEUMATOID ARTHRITIS
     Route: 058

REACTIONS (2)
  - APPLICATION SITE ULCER [None]
  - STAPHYLOCOCCAL INFECTION [None]
